FAERS Safety Report 18407408 (Version 3)
Quarter: 2021Q2

REPORT INFORMATION
  Report Type: Spontaneous
  Country: US (occurrence: US)
  Receive Date: 20201021
  Receipt Date: 20210611
  Transmission Date: 20210717
  Serious: Yes (Hospitalization, Disabling, Other)
  Sender: FDA-Public Use
  Company Number: US-SA-2020SA287902

PATIENT

DRUGS (4)
  1. ZANTAC [Suspect]
     Active Substance: RANITIDINE HYDROCHLORIDE
     Route: 048
  2. NIZATIDINE. [Suspect]
     Active Substance: NIZATIDINE
  3. PEPCID F [Suspect]
     Active Substance: ALUMINUM HYDROXIDE\MAGNESIUM CARBONATE
  4. CIMETIDINE [Suspect]
     Active Substance: CIMETIDINE

REACTIONS (7)
  - Injury [Unknown]
  - Anxiety [Unknown]
  - Physical disability [Unknown]
  - Anhedonia [Unknown]
  - Neoplasm malignant [Unknown]
  - Pain [Unknown]
  - Emotional distress [Unknown]
